FAERS Safety Report 16054734 (Version 2)
Quarter: 2019Q1

REPORT INFORMATION
  Report Type: Spontaneous
  Country: DE (occurrence: DE)
  Receive Date: 20190309
  Receipt Date: 20190311
  Transmission Date: 20190418
  Serious: Yes (Other)
  Sender: FDA-Public Use
  Company Number: DE-JNJFOC-20190306090

PATIENT
  Age: 8 Decade
  Sex: Male

DRUGS (3)
  1. MARCUMAR [Concomitant]
     Active Substance: PHENPROCOUMON
     Indication: HEART VALVE REPLACEMENT
     Route: 065
  2. REGAINE MEN SOLUTION 5% [Suspect]
     Active Substance: MINOXIDIL
     Indication: ALOPECIA
     Dosage: HE JUST USED IT FROM TIME TO TIME, ABOUT ONCE EVERY TWO WEEKS OR ONCE EVERY MONTH
     Route: 061
     Dates: start: 201611
  3. REGAINE MEN SOLUTION 5% [Suspect]
     Active Substance: MINOXIDIL
     Route: 061

REACTIONS (4)
  - Arrhythmia [Not Recovered/Not Resolved]
  - Product administered to patient of inappropriate age [Unknown]
  - Inappropriate schedule of product administration [Unknown]
  - Contraindicated product administered [Unknown]

NARRATIVE: CASE EVENT DATE: 201611
